FAERS Safety Report 10723047 (Version 1)
Quarter: 2015Q1

REPORT INFORMATION
  Report Type: Spontaneous
  Country: JP (occurrence: None)
  Receive Date: 20150114
  Receipt Date: 20150114
  Transmission Date: 20150721
  Serious: Yes (Hospitalization, Other)
  Sender: FDA-Public Use
  Company Number: DEP_02439_2015

PATIENT
  Age: 04 Year
  Sex: Male

DRUGS (7)
  1. ZONISAMIDE. [Concomitant]
     Active Substance: ZONISAMIDE
  2. PHENYTOIN (PHENYTOIN) [Suspect]
     Active Substance: PHENYTOIN
     Indication: INFANTILE SPASMS
     Dosage: DF
  3. GABAPENTIN (GABAPENTIN) [Suspect]
     Active Substance: GABAPENTIN
     Indication: INFANTILE SPASMS
     Dosage: DF
  4. VALPROATE [Suspect]
     Active Substance: VALPROIC ACID
     Indication: INFANTILE SPASMS
     Dosage: DF
  5. RISPERIDONE. [Concomitant]
     Active Substance: RISPERIDONE
  6. GABAPENTIN (GABAPENTIN) [Suspect]
     Active Substance: GABAPENTIN
     Indication: OFF LABEL USE
     Dosage: DF
  7. CLONAZEPAM. [Concomitant]
     Active Substance: CLONAZEPAM

REACTIONS (2)
  - Leukopenia [None]
  - Toxic epidermal necrolysis [None]
